FAERS Safety Report 7332871-3 (Version None)
Quarter: 2011Q1

REPORT INFORMATION
  Report Type: 
  Country: None (occurrence: None)
  Receive Date: 20110304
  Receipt Date: 20110301
  Transmission Date: 20110831
  Serious: Yes (Hospitalization, Disabling, Other)
  Sender: FDA-Public Use
  Company Number: BR-PFIZER INC-2011039464

PATIENT
  Age: 68 Year
  Sex: Male

DRUGS (11)
  1. METFORMIN HYDROCHLORIDE [Concomitant]
     Indication: DIABETES MELLITUS
     Dosage: UNK
  2. METFORMIN HYDROCHLORIDE [Concomitant]
     Indication: DIABETES MELLITUS
     Dosage: UNK
  3. OMEPRAZOLE [Concomitant]
     Dosage: UNK
  4. CARVEDILOL [Concomitant]
     Dosage: 3.125 MG, 1X/DAY
  5. PRANDIN [Concomitant]
     Indication: DIABETES MELLITUS
     Dosage: UNK
  6. MONOCORDIL [Suspect]
     Dosage: UNK
     Dates: end: 20110201
  7. LIPITOR [Concomitant]
     Dosage: 20 MG, 2X/DAY
  8. LIPLESS [Concomitant]
     Dosage: UNK
  9. NORVASC [Suspect]
     Indication: HYPERTENSION
     Dosage: 5 MG, 2X/DAY
     Dates: start: 20080101
  10. OLMETEC [Suspect]
     Indication: HYPERTENSION
     Dosage: 40 MG, 1X/DAY
     Route: 048
     Dates: start: 20080101, end: 20110201
  11. DIGOXIN [Suspect]
     Dosage: UNK
     Dates: end: 20110201

REACTIONS (9)
  - TOXICITY TO VARIOUS AGENTS [None]
  - FATIGUE [None]
  - PULMONARY OEDEMA [None]
  - DYSPNOEA [None]
  - BLOOD PRESSURE DECREASED [None]
  - BLOOD PRESSURE INCREASED [None]
  - SKIN DISCOLOURATION [None]
  - EXOSTOSIS [None]
  - CARDIAC DISORDER [None]
